FAERS Safety Report 24931833 (Version 1)
Quarter: 2025Q1

REPORT INFORMATION
  Report Type: Report from Study
  Country: CA (occurrence: CA)
  Receive Date: 20250205
  Receipt Date: 20250205
  Transmission Date: 20250408
  Serious: No
  Sender: EXELIXIS
  Company Number: CA-IPSEN Group, Research and Development-2024-12449

PATIENT
  Sex: Female

DRUGS (15)
  1. CABOMETYX [Suspect]
     Active Substance: CABOZANTINIB S-MALATE
     Indication: Renal cell carcinoma
     Dosage: 40 MG, QD
     Route: 065
     Dates: start: 20240326
  2. HYDROMORPHONE [Concomitant]
     Active Substance: HYDROMORPHONE
  3. FOLIC ACID [Concomitant]
     Active Substance: FOLIC ACID
     Dosage: 1 CO DIE
  4. Mint apixaban [Concomitant]
     Dosage: 1 CO BID
  5. BISOPROLOL FUMARATE [Concomitant]
     Active Substance: BISOPROLOL FUMARATE
  6. SYNTHROID [Concomitant]
     Active Substance: LEVOTHYROXINE SODIUM
  7. Mint ranitidine [Concomitant]
  8. GLYCOPYRRONIUM\INDACATEROL [Concomitant]
     Active Substance: GLYCOPYRRONIUM\INDACATEROL
     Dosage: 50-110 MCG INH 1 INH DIE
  9. TRAZODONE [Concomitant]
     Active Substance: TRAZODONE HYDROCHLORIDE
     Dosage: 1 CO HS PRN
  10. LOPERAMIDE [Concomitant]
     Active Substance: LOPERAMIDE
  11. ACETAMINOPHEN [Concomitant]
     Active Substance: ACETAMINOPHEN
  12. PROCHLORPERAZINE [Concomitant]
     Active Substance: PROCHLORPERAZINE
  13. SALVEN [Concomitant]
  14. GLAXAL BASE [Concomitant]
     Dosage: UNK, BID
  15. UREMOL [Concomitant]
     Active Substance: UREA
     Dosage: PRN

REACTIONS (1)
  - Adverse event [Unknown]
